FAERS Safety Report 16574987 (Version 2)
Quarter: 2019Q3

REPORT INFORMATION
  Report Type: Spontaneous
  Country: FR (occurrence: FR)
  Receive Date: 20190715
  Receipt Date: 20190912
  Transmission Date: 20191004
  Serious: Yes (Congenital Anomaly)
  Sender: FDA-Public Use
  Company Number: PHHY2019FR159441

PATIENT
  Age: 19 Week
  Sex: Male

DRUGS (4)
  1. TAMIFLU [Suspect]
     Active Substance: OSELTAMIVIR PHOSPHATE
     Indication: FOETAL EXPOSURE DURING PREGNANCY
     Route: 064
  2. ASPEGIC ADULTES [Suspect]
     Active Substance: ASPIRIN DL-LYSINE
     Indication: FOETAL EXPOSURE DURING PREGNANCY
     Dosage: MOTHER DOSE: 2 DF, QD
     Route: 064
     Dates: start: 20190321, end: 20190322
  3. AMOXICILLIN. [Suspect]
     Active Substance: AMOXICILLIN
     Indication: FOETAL EXPOSURE DURING PREGNANCY
     Dosage: MOTHER DOSE: 3 G, QD
     Route: 064
     Dates: start: 20190322, end: 20190329
  4. OROZAMUDOL [Suspect]
     Active Substance: TRAMADOL
     Indication: FOETAL EXPOSURE DURING PREGNANCY
     Dosage: MOTHER DOSE: 2 DF, QD
     Route: 064
     Dates: start: 201903, end: 201903

REACTIONS (2)
  - Cleft lip and palate [Not Recovered/Not Resolved]
  - Congenital heart valve disorder [Not Recovered/Not Resolved]

NARRATIVE: CASE EVENT DATE: 20190519
